FAERS Safety Report 18033239 (Version 1)
Quarter: 2020Q3

REPORT INFORMATION
  Report Type: Spontaneous
  Country: US (occurrence: US)
  Receive Date: 20200716
  Receipt Date: 20200716
  Transmission Date: 20201103
  Serious: Yes (Death, Other)
  Sender: FDA-Public Use
  Company Number: US-GILEAD-2020-0483276

PATIENT
  Age: 55 Year
  Sex: Male
  Weight: 104.3 kg

DRUGS (22)
  1. ZINC SULFATE. [Concomitant]
     Active Substance: ZINC SULFATE
  2. DAPTOMYCIN. [Concomitant]
     Active Substance: DAPTOMYCIN
  3. PIPERACILLIN AND TAZOBACTAM [Concomitant]
     Active Substance: PIPERACILLIN SODIUM\TAZOBACTAM SODIUM
  4. REMDESIVIR. [Suspect]
     Active Substance: REMDESIVIR
     Dosage: 100 MG, QD
     Route: 042
     Dates: start: 20200701, end: 20200705
  5. CEFTRIAXONE. [Concomitant]
     Active Substance: CEFTRIAXONE
  6. PRECEDEX [Concomitant]
     Active Substance: DEXMEDETOMIDINE HYDROCHLORIDE
  7. AZITHROMYCIN ANHYDROUS. [Concomitant]
     Active Substance: AZITHROMYCIN ANHYDROUS
  8. REMDESIVIR. [Suspect]
     Active Substance: REMDESIVIR
     Indication: COVID-19 PNEUMONIA
     Dosage: 200 MG, ONCE
     Route: 042
     Dates: start: 20200630, end: 20200630
  9. METOPROLOL. [Concomitant]
     Active Substance: METOPROLOL
  10. SODIUM BICARBONATE. [Concomitant]
     Active Substance: SODIUM BICARBONATE
  11. VITAMIN C [Concomitant]
     Active Substance: ASCORBIC ACID
  12. BENZTROPINE [BENZATROPINE] [Concomitant]
     Active Substance: BENZTROPINE
  13. MEROPENEM. [Concomitant]
     Active Substance: MEROPENEM
  14. CEFEPIME [Concomitant]
     Active Substance: CEFEPIME HYDROCHLORIDE
  15. DEXAMETHASONE. [Concomitant]
     Active Substance: DEXAMETHASONE
  16. ENOXAPARIN [Concomitant]
     Active Substance: ENOXAPARIN
  17. INSULIN LISPRO [Concomitant]
     Active Substance: INSULIN LISPRO
  18. CULTURELLE [Concomitant]
     Active Substance: LACTOBACILLUS RHAMNOSUS
  19. DIAZEPAM. [Concomitant]
     Active Substance: DIAZEPAM
  20. FENTANYL. [Concomitant]
     Active Substance: FENTANYL
  21. NOREPINEPHRINE. [Concomitant]
     Active Substance: NOREPINEPHRINE
  22. PHENYLEPHRINE [Concomitant]
     Active Substance: PHENYLEPHRINE HYDROCHLORIDE

REACTIONS (2)
  - Death [Fatal]
  - Atrial fibrillation [Unknown]

NARRATIVE: CASE EVENT DATE: 20200705
